FAERS Safety Report 16365409 (Version 1)
Quarter: 2019Q2

REPORT INFORMATION
  Report Type: Spontaneous
  Country: US (occurrence: US)
  Receive Date: 20190420
  Receipt Date: 20190420
  Transmission Date: 20190711
  Serious: Yes (Hospitalization)
  Sender: FDA-Public Use
  Company Number: None

PATIENT
  Age: 51 Year
  Sex: Male
  Weight: 76.43 kg

DRUGS (1)
  1. XELODA [Suspect]
     Active Substance: CAPECITABINE
     Dates: end: 20190123

REACTIONS (5)
  - Urine output decreased [None]
  - Nausea [None]
  - Ileus [None]
  - Muscle spasms [None]
  - Condition aggravated [None]

NARRATIVE: CASE EVENT DATE: 20190327
